FAERS Safety Report 18961155 (Version 3)
Quarter: 2021Q3

REPORT INFORMATION
  Report Type: Other
  Country: FR (occurrence: FR)
  Receive Date: 20210303
  Receipt Date: 20210702
  Transmission Date: 20211014
  Serious: Yes (Death, Life-Threatening, Hospitalization, Other)
  Sender: FDA-Public Use
  Company Number: FR-CADILA HEALTHCARE LIMITED-FR-ZYDUS-062506

PATIENT

DRUGS (15)
  1. TRACRIUM [Suspect]
     Active Substance: ATRACURIUM BESYLATE
     Indication: ANAESTHESIA
     Dosage: 1 DOSAGE FORM, 1 DOSAGE TOTAL
     Route: 042
     Dates: start: 20210126, end: 20210126
  2. TAZOCILLINE [Concomitant]
     Active Substance: PIPERACILLIN SODIUM\TAZOBACTAM SODIUM
     Indication: SEPSIS
     Dosage: 4 G, QD
     Route: 065
  3. LANSOPRAZOLE. [Suspect]
     Active Substance: LANSOPRAZOLE
     Indication: PRODUCT USED FOR UNKNOWN INDICATION
     Dosage: 30 MG, QD
     Route: 048
     Dates: start: 20210127, end: 20210201
  4. OPDIVO [Suspect]
     Active Substance: NIVOLUMAB
     Indication: MALIGNANT MELANOMA
     Dosage: 1 MG/KG
     Route: 042
     Dates: start: 20201223, end: 20210113
  5. PARACETAMOL [Suspect]
     Active Substance: ACETAMINOPHEN
     Indication: ANALGESIC THERAPY
     Dosage: 1 G, 1 DOSAGE TOTAL
     Route: 042
     Dates: start: 20210126, end: 20210126
  6. EXACYL [Suspect]
     Active Substance: TRANEXAMIC ACID
     Indication: PRODUCT USED FOR UNKNOWN INDICATION
     Dosage: 500 MG, 1 DOSE 8 HOURS
     Route: 042
     Dates: start: 20210123, end: 20210201
  7. HEPARINE [HEPARIN] [Suspect]
     Active Substance: HEPARIN SODIUM
     Indication: ANTICOAGULANT THERAPY
     Dosage: 7758 IU, QD
     Route: 042
     Dates: start: 20210126, end: 20210126
  8. SUFENTANIL [Suspect]
     Active Substance: SUFENTANIL
     Indication: INDUCTION OF ANAESTHESIA
     Dosage: 30 ?G, 1 DOSAGE TOTAL
     Route: 042
     Dates: start: 20210126, end: 20210126
  9. EUPANTOL [Concomitant]
     Active Substance: PANTOPRAZOLE SODIUM
     Indication: PRODUCT USED FOR UNKNOWN INDICATION
     Dosage: UNK
     Route: 048
     Dates: end: 20210123
  10. NEOSYNEPHRINE [Suspect]
     Active Substance: PHENYLEPHRINE HYDROCHLORIDE
     Indication: ANAESTHESIA
     Dosage: 200 ?G, 1 DOSAGE TOTAL
     Route: 042
     Dates: start: 20210126, end: 20210126
  11. PROPOFOL. [Suspect]
     Active Substance: PROPOFOL
     Indication: ANAESTHESIA
     Dosage: 100 MG, 1 DOSAGE TOTAL
     Route: 042
     Dates: start: 20210126, end: 20210126
  12. XENETIX [Suspect]
     Active Substance: IOBITRIDOL
     Indication: SCAN WITH CONTRAST
     Dosage: UNK
     Route: 042
     Dates: start: 20210128, end: 20210128
  13. EPHEDRINE. [Suspect]
     Active Substance: EPHEDRINE
     Indication: ANAESTHESIA
     Dosage: 30 MG, 1 DOSAGE TOTAL
     Route: 042
     Dates: start: 20210126, end: 20210126
  14. NICARDIPINE [Suspect]
     Active Substance: NICARDIPINE
     Indication: EPISTAXIS
     Dosage: 20 MG, TOTAL
     Route: 048
     Dates: start: 20210123, end: 20210123
  15. YERVOY [Suspect]
     Active Substance: IPILIMUMAB
     Indication: MALIGNANT MELANOMA
     Dosage: 3 MG/KG, CYC (CYCLICAL)
     Route: 042
     Dates: start: 20201223, end: 20210113

REACTIONS (14)
  - Atelectasis [Unknown]
  - Epistaxis [Unknown]
  - Eosinophilia [Not Recovered/Not Resolved]
  - Somnolence [Unknown]
  - Conjunctivitis [Unknown]
  - Pyrexia [Not Recovered/Not Resolved]
  - Sepsis [Unknown]
  - Drug reaction with eosinophilia and systemic symptoms [Not Recovered/Not Resolved]
  - Hypertension [Recovering/Resolving]
  - Product use issue [Unknown]
  - General physical health deterioration [Unknown]
  - Rash maculo-papular [Not Recovered/Not Resolved]
  - Respiratory distress [Recovering/Resolving]
  - Leukocyturia [Unknown]

NARRATIVE: CASE EVENT DATE: 202101
